FAERS Safety Report 8175844-3 (Version None)
Quarter: 2012Q1

REPORT INFORMATION
  Report Type: 
  Country: None (occurrence: None)
  Receive Date: 20120301
  Receipt Date: 20120222
  Transmission Date: 20120608
  Serious: Yes (Hospitalization, Other)
  Sender: FDA-Public Use
  Company Number: US-TEVA-323866USA

PATIENT
  Age: 30 Year
  Sex: Female

DRUGS (1)
  1. AMPHETAMINE AND DEXTROAMPHETAMINE SALTS [Suspect]

REACTIONS (4)
  - ABNORMAL BEHAVIOUR [None]
  - INSOMNIA [None]
  - BLINDNESS [None]
  - HALLUCINATIONS, MIXED [None]
